FAERS Safety Report 4760547-5 (Version None)
Quarter: 2005Q3

REPORT INFORMATION
  Report Type: 
  Country: None (occurrence: None)
  Receive Date: 20050902
  Receipt Date: 20050414
  Transmission Date: 20060218
  Serious: Yes (Other)
  Sender: FDA-Public Use
  Company Number: US-MERCK-0504USA02838

PATIENT
  Age: 66 Year
  Sex: Male
  Weight: 77 kg

DRUGS (12)
  1. VIOXX [Suspect]
     Indication: RHEUMATOID ARTHRITIS
     Route: 048
     Dates: start: 20020501, end: 20040801
  2. GLUCOPHAGE [Concomitant]
     Route: 065
  3. NOVOLIN [Concomitant]
     Route: 065
  4. DIGOXIN [Concomitant]
     Route: 065
     Dates: start: 20010101
  5. NORVASC [Concomitant]
     Route: 065
     Dates: start: 20000101
  6. DIPYRIDAMOLE [Concomitant]
     Route: 065
  7. HYDROCODONE BITARTRATE [Concomitant]
     Route: 065
  8. ACETAMINOPHEN [Concomitant]
     Route: 065
  9. HYDROCHLOROTHIAZIDE [Concomitant]
     Route: 065
  10. PLAVIX [Concomitant]
     Route: 065
  11. CELEBREX [Concomitant]
     Route: 065
  12. ASPIRIN [Concomitant]
     Route: 065
     Dates: start: 20010101

REACTIONS (2)
  - CARDIAC DISORDER [None]
  - CEREBROVASCULAR ACCIDENT [None]
